FAERS Safety Report 9565865 (Version 4)
Quarter: 2013Q4

REPORT INFORMATION
  Report Type: Report from Study
  Country: US (occurrence: US)
  Receive Date: 20130930
  Receipt Date: 20131023
  Transmission Date: 20140711
  Serious: Yes (Hospitalization, Other)
  Sender: FDA-Public Use
  Company Number: US-PFIZER INC-2013225750

PATIENT
  Age: 29 Year
  Sex: Female
  Weight: 82 kg

DRUGS (4)
  1. TOFACITINIB CITRATE [Suspect]
     Indication: PSORIASIS
     Dosage: 10 MG, 2X/DAY
     Route: 048
     Dates: start: 20120823, end: 20130801
  2. NASONEX [Concomitant]
     Indication: CHRONIC SINUSITIS
     Dosage: 2 DF (2 PUMP), AS NEEDED
     Route: 045
     Dates: start: 2003
  3. ALLEGRA [Concomitant]
     Indication: CHRONIC SINUSITIS
     Dosage: 180 MG (1 DOSE TAB), QD PRN
     Route: 048
     Dates: start: 2003
  4. ALBUTEROL [Concomitant]
     Indication: ASTHMA
     Dosage: PRN
     Route: 045
     Dates: start: 2003

REACTIONS (2)
  - Staphylococcal infection [Recovered/Resolved]
  - Subcutaneous abscess [Recovered/Resolved]
